FAERS Safety Report 25214952 (Version 5)
Quarter: 2025Q3

REPORT INFORMATION
  Report Type: Spontaneous
  Country: US (occurrence: US)
  Receive Date: 20250418
  Receipt Date: 20250702
  Transmission Date: 20251020
  Serious: Yes (Other)
  Sender: PFIZER
  Company Number: US-PFIZER INC-202500081781

PATIENT
  Age: 74 Year
  Sex: Female
  Weight: 93.44 kg

DRUGS (2)
  1. METOPROLOL TARTRATE [Suspect]
     Active Substance: METOPROLOL TARTRATE
  2. BYDUREON BCISE [Concomitant]
     Active Substance: EXENATIDE
     Indication: Diabetes mellitus
     Dosage: UNK, ONCE A WEEK

REACTIONS (1)
  - Atrial fibrillation [Not Recovered/Not Resolved]
